FAERS Safety Report 13992320 (Version 1)
Quarter: 2017Q3

REPORT INFORMATION
  Report Type: Spontaneous
  Country: US (occurrence: US)
  Receive Date: 20170920
  Receipt Date: 20170920
  Transmission Date: 20171128
  Serious: No
  Sender: FDA-Public Use
  Company Number: US-JNJFOC-20170712132

PATIENT
  Sex: Female
  Weight: 58.97 kg

DRUGS (1)
  1. NIZORAL A-D [Suspect]
     Active Substance: KETOCONAZOLE
     Indication: PRURITUS
     Dosage: MORE THAN A HALF DOLLAR SIZE AMOUNT
     Route: 061
     Dates: start: 20170711

REACTIONS (3)
  - Product use in unapproved indication [Unknown]
  - Hair texture abnormal [Not Recovered/Not Resolved]
  - Off label use [Unknown]
